APPROVED DRUG PRODUCT: HYDROCODONE BITARTRATE AND ACETAMINOPHEN
Active Ingredient: ACETAMINOPHEN; HYDROCODONE BITARTRATE
Strength: 325MG;5MG
Dosage Form/Route: TABLET;ORAL
Application: A040655 | Product #001
Applicant: STRIDES PHARMA INTERNATIONAL AG
Approved: Jan 19, 2006 | RLD: No | RS: No | Type: DISCN